FAERS Safety Report 22818472 (Version 6)
Quarter: 2024Q1

REPORT INFORMATION
  Report Type: Report from Study
  Country: US (occurrence: US)
  Receive Date: 20230814
  Receipt Date: 20240306
  Transmission Date: 20240410
  Serious: No
  Sender: FDA-Public Use
  Company Number: US-ACADIA PHARMACEUTICALS INC.-ACA-2023-TRF-003009

PATIENT
  Age: 28 Year
  Sex: Female

DRUGS (21)
  1. DAYBUE [Suspect]
     Active Substance: TROFINETIDE
     Indication: Rett syndrome
     Dosage: 30 MILLILITER, BID, VIA G TUBE
     Dates: start: 20230715, end: 20230716
  2. DAYBUE [Suspect]
     Active Substance: TROFINETIDE
     Dosage: 50 MILLILITER, BID VIA G-TUBE
     Dates: start: 20230717
  3. DAYBUE [Suspect]
     Active Substance: TROFINETIDE
     Dosage: 50 MILLILITER, BID
  4. DAYBUE [Suspect]
     Active Substance: TROFINETIDE
     Dosage: 50 MILLILITER, BID VIA G-TUBE
  5. ENSURE [Concomitant]
     Active Substance: AMINO ACIDS\DEXTROSE\ELECTROLYTES NOS\SOYBEAN OIL\VITAMINS
     Indication: Nutritional supplementation
  6. BISACODYL [Concomitant]
     Active Substance: BISACODYL
  7. ONFI [Concomitant]
     Active Substance: CLOBAZAM
  8. NORETHINDRONE [Concomitant]
     Active Substance: NORETHINDRONE
  9. TIZANIDINE [Concomitant]
     Active Substance: TIZANIDINE
  10. KEPPRA [Concomitant]
     Active Substance: LEVETIRACETAM
  11. VIMPAT [Concomitant]
     Active Substance: LACOSAMIDE
  12. ZYRTEC [Concomitant]
     Active Substance: CETIRIZINE HYDROCHLORIDE
  13. POLYVISOL [ASCORBIC ACID;ERGOCALCIFEROL;NICOTINAMIDE;RETINOL PALMITATE [Concomitant]
  14. MIRALAX [Concomitant]
     Active Substance: POLYETHYLENE GLYCOL 3350
  15. PREVACID [Concomitant]
     Active Substance: LANSOPRAZOLE
  16. PROBIOTICS NOS [Concomitant]
     Active Substance: PROBIOTICS NOS
  17. FOLIC ACID [Concomitant]
     Active Substance: FOLIC ACID
  18. MONUROL [Concomitant]
     Active Substance: FOSFOMYCIN TROMETHAMINE
  19. CRANBERRY JUICE [Concomitant]
     Active Substance: CRANBERRY JUICE
  20. IMODIUM AD [Concomitant]
     Active Substance: LOPERAMIDE HYDROCHLORIDE
  21. METAMUCIL [Concomitant]
     Active Substance: PLANTAGO SEED

REACTIONS (7)
  - Underdose [Recovered/Resolved]
  - Diarrhoea [Recovering/Resolving]
  - Diarrhoea [Not Recovered/Not Resolved]
  - Diarrhoea [Not Recovered/Not Resolved]
  - Diarrhoea [Not Recovered/Not Resolved]
  - Vomiting [Not Recovered/Not Resolved]
  - Diarrhoea [Recovering/Resolving]

NARRATIVE: CASE EVENT DATE: 20230715
